FAERS Safety Report 8457538-X (Version None)
Quarter: 2012Q2

REPORT INFORMATION
  Report Type: 
  Country: None (occurrence: None)
  Receive Date: 20120622
  Receipt Date: 20120613
  Transmission Date: 20120825
  Serious: Yes (Hospitalization)
  Sender: FDA-Public Use
  Company Number: US-BIOGENIDEC-2012BI021164

PATIENT
  Age: 46 Year
  Sex: Male

DRUGS (1)
  1. TYSABRI [Suspect]
     Indication: MULTIPLE SCLEROSIS
     Route: 042
     Dates: start: 20120524

REACTIONS (6)
  - FACIAL BONES FRACTURE [None]
  - STERNAL FRACTURE [None]
  - CONTUSION [None]
  - CONCUSSION [None]
  - AMNESIA [None]
  - UPPER LIMB FRACTURE [None]
